FAERS Safety Report 7721463-X (Version None)
Quarter: 2011Q3

REPORT INFORMATION
  Report Type: 
  Country: None (occurrence: None)
  Receive Date: 20110831
  Receipt Date: 20110818
  Transmission Date: 20111222
  Serious: Yes (Other)
  Sender: FDA-Public Use
  Company Number: DE-ROCHE-799342

PATIENT
  Age: 53 Year
  Sex: Female

DRUGS (3)
  1. XENICAL [Suspect]
     Route: 048
  2. XENICAL [Suspect]
     Route: 048
  3. XENICAL [Suspect]
     Route: 048

REACTIONS (2)
  - HYPERHIDROSIS [None]
  - CARDIAC DISORDER [None]
